FAERS Safety Report 7241609-X (Version None)
Quarter: 2011Q1

REPORT INFORMATION
  Report Type: 
  Country: None (occurrence: None)
  Receive Date: 20110124
  Receipt Date: 20110117
  Transmission Date: 20110831
  Serious: No
  Sender: FDA-Public Use
  Company Number: GB-ASTRAZENECA-2011SE02819

PATIENT
  Sex: Male

DRUGS (2)
  1. CLOZAPINE [Concomitant]
  2. SEROQUEL XR [Suspect]
     Indication: SCHIZOPHRENIA
     Route: 048

REACTIONS (1)
  - NEUTROPHIL COUNT DECREASED [None]
